FAERS Safety Report 20751482 (Version 1)
Quarter: 2022Q2

REPORT INFORMATION
  Report Type: Spontaneous
  Country: EG (occurrence: EG)
  Receive Date: 20220426
  Receipt Date: 20220426
  Transmission Date: 20220720
  Serious: Yes (Death, Hospitalization)
  Sender: FDA-Public Use
  Company Number: EG-PFIZER INC-202200522546

PATIENT
  Age: 44 Year
  Sex: Female

DRUGS (2)
  1. INLYTA [Suspect]
     Active Substance: AXITINIB
     Dosage: ONE TABLET DAILY FOR 2 WEEKS THEN 2 TABLETS DAILY CONTINUOUSLY
     Route: 048
     Dates: start: 20211206
  2. INLYTA [Suspect]
     Active Substance: AXITINIB
     Dosage: ONE TABLET DAILY FOR 2 WEEKS THEN 2 TABLETS DAILY CONTINUOUSLY

REACTIONS (3)
  - Death [Fatal]
  - Vomiting [Unknown]
  - Off label use [Unknown]
